FAERS Safety Report 5334600-1 (Version None)
Quarter: 2007Q2

REPORT INFORMATION
  Report Type: 
  Country: None (occurrence: None)
  Receive Date: 20070525
  Receipt Date: 20070511
  Transmission Date: 20071010
  Serious: Yes (Other)
  Sender: FDA-Public Use
  Company Number: DE-GENENTECH-241494

PATIENT
  Age: 81 Year
  Sex: Female

DRUGS (4)
  1. LUCENTIS [Suspect]
     Indication: MACULAR DEGENERATION
     Dosage: UNK, SINGLE
     Route: 031
     Dates: start: 20070328
  2. MARCUMAR [Concomitant]
     Indication: ATRIAL FIBRILLATION
  3. PLAVIX [Concomitant]
     Indication: ATRIAL FIBRILLATION
  4. ASPIRIN [Concomitant]
     Indication: ATRIAL FIBRILLATION

REACTIONS (1)
  - CEREBROVASCULAR ACCIDENT [None]
